FAERS Safety Report 17282472 (Version 1)
Quarter: 2020Q1

REPORT INFORMATION
  Report Type: Spontaneous
  Country: US (occurrence: US)
  Receive Date: 20200117
  Receipt Date: 20200117
  Transmission Date: 20200409
  Serious: Yes (Other)
  Sender: FDA-Public Use
  Company Number: US-HIKMA PHARMACEUTICALS USA INC.-US-H14001-20-00105

PATIENT

DRUGS (11)
  1. PREDNISONE. [Suspect]
     Active Substance: PREDNISONE
     Indication: ADULT T-CELL LYMPHOMA/LEUKAEMIA
     Route: 065
  2. CYCLOPHOSPHAMIDE. [Suspect]
     Active Substance: CYCLOPHOSPHAMIDE
     Indication: ADULT T-CELL LYMPHOMA/LEUKAEMIA
     Route: 065
  3. VINCRISTINE [Suspect]
     Active Substance: VINCRISTINE
     Indication: ADULT T-CELL LYMPHOMA/LEUKAEMIA
     Route: 065
  4. CARBOPLATIN. [Suspect]
     Active Substance: CARBOPLATIN
     Indication: ADULT T-CELL LYMPHOMA/LEUKAEMIA
     Route: 065
  5. ETOPOSIDE. [Suspect]
     Active Substance: ETOPOSIDE
     Indication: ADULT T-CELL LYMPHOMA/LEUKAEMIA
     Route: 065
  6. ETOPOSIDE. [Suspect]
     Active Substance: ETOPOSIDE
     Indication: ADULT T-CELL LYMPHOMA/LEUKAEMIA
     Route: 065
  7. ALRN [Suspect]
     Active Substance: UNSPECIFIED INGREDIENT
     Indication: ADULT T-CELL LYMPHOMA/LEUKAEMIA
     Route: 065
  8. DOXORUBICIN [Suspect]
     Active Substance: DOXORUBICIN
     Indication: ADULT T-CELL LYMPHOMA/LEUKAEMIA
     Route: 065
  9. DECITABINE. [Suspect]
     Active Substance: DECITABINE
     Indication: ADULT T-CELL LYMPHOMA/LEUKAEMIA
     Route: 065
  10. VENETOCLAX. [Suspect]
     Active Substance: VENETOCLAX
     Indication: ADULT T-CELL LYMPHOMA/LEUKAEMIA
     Route: 065
  11. IFOSFAMIDE. [Suspect]
     Active Substance: IFOSFAMIDE
     Indication: ADULT T-CELL LYMPHOMA/LEUKAEMIA
     Route: 065

REACTIONS (4)
  - Adult T-cell lymphoma/leukaemia [Unknown]
  - Leukaemia recurrent [Unknown]
  - Condition aggravated [Unknown]
  - Gene mutation [Unknown]
